FAERS Safety Report 25634009 (Version 1)
Quarter: 2025Q3

REPORT INFORMATION
  Report Type: Spontaneous
  Country: US (occurrence: US)
  Receive Date: 20250801
  Receipt Date: 20250801
  Transmission Date: 20251021
  Serious: No
  Sender: SANOFI AVENTIS
  Company Number: US-SA-2025SA223868

PATIENT
  Age: 53 Year
  Sex: Male

DRUGS (1)
  1. DUPIXENT [Suspect]
     Active Substance: DUPILUMAB
     Indication: Asthma
     Dosage: 300 MG, QOW
     Route: 058
     Dates: start: 202411

REACTIONS (5)
  - Respiratory tract infection [Not Recovered/Not Resolved]
  - Oxygen saturation decreased [Unknown]
  - Fatigue [Unknown]
  - Pleural effusion [Unknown]
  - Asthma [Unknown]

NARRATIVE: CASE EVENT DATE: 20250101
